FAERS Safety Report 7137055 (Version 3)
Quarter: 2012Q4

REPORT INFORMATION
  Report Type: 
  Country: US (occurrence: US)
  Receive Date: 20091002
  Receipt Date: 20121217
  Transmission Date: 20130627
  Serious: Yes (Other)
  Sender: FDA-Public Use
  Company Number: US-ASTRAZENECA-2006UW09687

PATIENT
  Age: 78 Year
  Sex: Female
  Weight: 75.8 kg

DRUGS (11)
  1. ARIMIDEX [Suspect]
     Route: 048
     Dates: start: 2006
  2. EXEMESTANE [Suspect]
     Route: 048
  3. CRESTOR [Suspect]
     Route: 048
  4. METFORMIN [Concomitant]
     Indication: DIABETES MELLITUS
  5. GLYBURIDE [Concomitant]
     Indication: DIABETES MELLITUS
  6. JANUVIA [Concomitant]
     Indication: DIABETES MELLITUS
  7. CALCIUM [Concomitant]
  8. FISH OIL [Concomitant]
  9. CENTRUM SILVER [Concomitant]
  10. VITAMIN C [Concomitant]
  11. OTHER MEDICATIONS [Concomitant]

REACTIONS (6)
  - Neoplasm malignant [Unknown]
  - Malaise [Unknown]
  - Low density lipoprotein decreased [Unknown]
  - Hot flush [Unknown]
  - Arthritis [Unknown]
  - Arthralgia [Unknown]
